FAERS Safety Report 8241533-X (Version None)
Quarter: 2012Q1

REPORT INFORMATION
  Report Type: 
  Country: None (occurrence: None)
  Receive Date: 20120328
  Receipt Date: 20111111
  Transmission Date: 20120608
  Serious: Yes (Other)
  Sender: FDA-Public Use
  Company Number: US-COVIDIEN/TYCO HEALTHCARE/MALLINCKRODT-T201102636

PATIENT
  Sex: Male

DRUGS (1)
  1. METHADOSE [Suspect]
     Indication: DRUG REHABILITATION
     Dosage: UNK
     Dates: start: 20110201

REACTIONS (1)
  - ROAD TRAFFIC ACCIDENT [None]
